FAERS Safety Report 9887247 (Version 1)
Quarter: 2014Q1

REPORT INFORMATION
  Report Type: Spontaneous
  Country: US (occurrence: US)
  Receive Date: 20140211
  Receipt Date: 20140211
  Transmission Date: 20141002
  Serious: No
  Sender: FDA-Public Use
  Company Number: US-BIOGENIDEC-2014BI010166

PATIENT
  Age: 65 Year
  Sex: Female

DRUGS (14)
  1. TECFIDERA [Suspect]
     Indication: MULTIPLE SCLEROSIS
     Route: 048
     Dates: start: 20140114
  2. ADVAIR [Concomitant]
  3. ALENDRONATE SODIUM [Concomitant]
  4. FLUTICASONE PROPIONATE [Concomitant]
  5. GABAPENTIN [Concomitant]
  6. LORAZEPAM [Concomitant]
  7. MAGNESIUM CARBONATE [Concomitant]
  8. MIRALAX [Concomitant]
  9. OMPERAZOLE-SODIUM BICARBONATE [Concomitant]
  10. PRAVASTATIN SODIUM [Concomitant]
  11. PROAIR HFA [Concomitant]
  12. PROMETHAZINE HCL [Concomitant]
  13. SUMATRIPTAN SUCCINATE [Concomitant]
  14. VALTREX [Concomitant]

REACTIONS (1)
  - Herpes simplex [Unknown]
